FAERS Safety Report 11599522 (Version 1)
Quarter: 2015Q4

REPORT INFORMATION
  Report Type: Spontaneous
  Country: IT (occurrence: IT)
  Receive Date: 20151006
  Receipt Date: 20151006
  Transmission Date: 20160304
  Serious: Yes (Other)
  Sender: FDA-Public Use
  Company Number: IT-KADMON PHARMACEUTICALS, LLC-KAD201505-001328

PATIENT
  Age: 65 Year
  Sex: Female

DRUGS (3)
  1. SOFOSBUVIR [Suspect]
     Active Substance: SOFOSBUVIR
  2. SIMEPREVIR [Suspect]
     Active Substance: SIMEPREVIR
  3. RIBAVIRIN. [Suspect]
     Active Substance: RIBAVIRIN

REACTIONS (3)
  - Pruritus [Unknown]
  - Chromaturia [Unknown]
  - Blood bilirubin increased [Unknown]
